FAERS Safety Report 8770843 (Version 3)
Quarter: 2012Q4

REPORT INFORMATION
  Report Type: 
  Country: US (occurrence: US)
  Receive Date: 20120906
  Receipt Date: 20121026
  Transmission Date: 20130627
  Serious: Yes (Death)
  Sender: FDA-Public Use
  Company Number: US-PFIZER INC-2012217405

PATIENT
  Age: 76 Year
  Sex: Female

DRUGS (1)
  1. SUTENT [Suspect]
     Indication: RENAL CANCER
     Dosage: 37.5 mg, cyclic (4 week on 2 week off)
     Route: 048
     Dates: start: 201109, end: 201208

REACTIONS (2)
  - Disease progression [Fatal]
  - Renal cancer [Fatal]
